FAERS Safety Report 6273311-5 (Version None)
Quarter: 2009Q3

REPORT INFORMATION
  Report Type: 
  Country: None (occurrence: None)
  Receive Date: 20090720
  Receipt Date: 20090706
  Transmission Date: 20100115
  Serious: Yes (Other)
  Sender: FDA-Public Use
  Company Number: AT-ROCHE-642061

PATIENT
  Sex: Male
  Weight: 98 kg

DRUGS (2)
  1. PEGASYS [Suspect]
     Indication: FIBROMATOSIS
     Route: 065
     Dates: start: 20090101, end: 20090210
  2. PEGASYS [Suspect]
     Dosage: BATCH NUMBER: B1131B02
     Route: 065
     Dates: start: 20090508, end: 20090612

REACTIONS (10)
  - AMBLYOPIA [None]
  - ANXIETY [None]
  - APHASIA [None]
  - DECREASED APPETITE [None]
  - HEADACHE [None]
  - HYPERTENSION [None]
  - INSOMNIA [None]
  - LOSS OF CONSCIOUSNESS [None]
  - PETIT MAL EPILEPSY [None]
  - TREMOR [None]
